FAERS Safety Report 21182742 (Version 1)
Quarter: 2022Q3

REPORT INFORMATION
  Report Type: Report from Study
  Country: US (occurrence: US)
  Receive Date: 20220808
  Receipt Date: 20220808
  Transmission Date: 20221027
  Serious: Yes (Other)
  Sender: FDA-Public Use
  Company Number: US-ABBVIE-22K-163-4492028-00

PATIENT
  Age: 42 Year
  Sex: Female

DRUGS (2)
  1. HUMIRA [Suspect]
     Active Substance: ADALIMUMAB
     Indication: Hidradenitis
     Route: 058
     Dates: start: 2020, end: 2020
  2. HUMIRA [Suspect]
     Active Substance: ADALIMUMAB
     Route: 058
     Dates: start: 2021

REACTIONS (7)
  - Neoplasm [Unknown]
  - Impaired work ability [Unknown]
  - Depression [Not Recovered/Not Resolved]
  - Hidradenitis [Recovered/Resolved]
  - Hidradenitis [Recovering/Resolving]
  - Pain [Unknown]
  - Infection [Unknown]

NARRATIVE: CASE EVENT DATE: 20200101
